FAERS Safety Report 8328056-4 (Version None)
Quarter: 2012Q2

REPORT INFORMATION
  Report Type: 
  Country: None (occurrence: None)
  Receive Date: 20120502
  Receipt Date: 20120423
  Transmission Date: 20120825
  Serious: Yes (Other)
  Sender: FDA-Public Use
  Company Number: PHHY2011JP67510

PATIENT
  Sex: Male

DRUGS (3)
  1. NEORAL [Suspect]
     Indication: DERMATITIS ATOPIC
     Dosage: 150 MG, UNK
     Route: 048
     Dates: start: 20010601, end: 20090201
  2. NEORAL [Suspect]
     Dosage: UNK UKN, UNK
     Route: 048
     Dates: start: 20090201, end: 20090201
  3. NEORAL [Suspect]
     Dosage: 150 MG, UNK
     Route: 048
     Dates: start: 20090201

REACTIONS (5)
  - CUTANEOUS AMYLOIDOSIS [None]
  - NODULE [None]
  - DERMATITIS ATOPIC [None]
  - LIGHT CHAIN ANALYSIS INCREASED [None]
  - BLOOD IMMUNOGLOBULIN E INCREASED [None]
